FAERS Safety Report 15728743 (Version 1)
Quarter: 2018Q4

REPORT INFORMATION
  Report Type: Spontaneous
  Country: JP (occurrence: JP)
  Receive Date: 20181217
  Receipt Date: 20181217
  Transmission Date: 20190205
  Serious: Yes (Hospitalization)
  Sender: FDA-Public Use
  Company Number: JP-JT-EVA201802929KERYXP-001

PATIENT
  Age: 53 Year
  Sex: Female

DRUGS (2)
  1. CALTAN [Concomitant]
     Active Substance: CALCIUM CARBONATE
     Indication: HYPERPHOSPHATAEMIA
     Dosage: 500 MG, Q12H
     Route: 048
  2. RIONA [Suspect]
     Active Substance: FERRIC CITRATE ANHYDROUS
     Indication: HYPERPHOSPHATAEMIA
     Dosage: 750 MG, Q8H
     Route: 048

REACTIONS (3)
  - Hyperferritinaemia [Unknown]
  - Vascular device infection [Recovered/Resolved]
  - Haemoglobinaemia [Unknown]

NARRATIVE: CASE EVENT DATE: 20150910
